FAERS Safety Report 9879861 (Version 1)
Quarter: 2014Q1

REPORT INFORMATION
  Report Type: Spontaneous
  Country: US (occurrence: US)
  Receive Date: 20140206
  Receipt Date: 20140206
  Transmission Date: 20141002
  Serious: No
  Sender: FDA-Public Use
  Company Number: US-009507513-1402USA002116

PATIENT
  Age: 33 Year
  Sex: Female

DRUGS (3)
  1. CLARITIN-D-12 [Suspect]
     Indication: HYPERSENSITIVITY
     Dosage: UNK, UNKNOWN
     Route: 048
  2. CLARITIN-D-12 [Suspect]
     Indication: RHINORRHOEA
  3. CLARITIN-D-12 [Suspect]
     Indication: SNEEZING

REACTIONS (3)
  - Dry eye [Unknown]
  - Increased appetite [Unknown]
  - Somnolence [Unknown]
